FAERS Safety Report 10203673 (Version 1)
Quarter: 2014Q2

REPORT INFORMATION
  Report Type: Spontaneous
  Country: US (occurrence: None)
  Receive Date: 20140523
  Receipt Date: 20140523
  Transmission Date: 20141212
  Serious: Yes (Hospitalization)
  Sender: FDA-Public Use
  Company Number: SP07828

PATIENT
  Sex: Male

DRUGS (4)
  1. XIFAXAN [Suspect]
     Indication: HEPATIC ENCEPHALOPATHY
     Route: 048
  2. SOVALDI [Suspect]
     Route: 048
     Dates: start: 201402
  3. RIBAVIRIN [Suspect]
  4. EPOETIN ALFA [Suspect]

REACTIONS (4)
  - Drug ineffective [None]
  - Haemoglobin decreased [None]
  - Urinary tract infection [None]
  - Dehydration [None]
